FAERS Safety Report 7144443-4 (Version None)
Quarter: 2010Q4

REPORT INFORMATION
  Report Type: 
  Country: None (occurrence: None)
  Receive Date: 20101208
  Receipt Date: 20100125
  Transmission Date: 20110411
  Serious: Yes (Death, Hospitalization)
  Sender: FDA-Public Use
  Company Number: US-ACTELION-A-US2006-13937

PATIENT

DRUGS (2)
  1. TRACLEER [Suspect]
     Indication: PULMONARY ARTERIAL HYPERTENSION
     Route: 048
     Dates: start: 20061201
  2. COUMADIN [Concomitant]

REACTIONS (5)
  - DEATH [None]
  - MEMORY IMPAIRMENT [None]
  - NASAL CONGESTION [None]
  - OEDEMA [None]
  - THROMBOSIS [None]
